FAERS Safety Report 24625044 (Version 2)
Quarter: 2024Q4

REPORT INFORMATION
  Report Type: Spontaneous
  Country: JP (occurrence: JP)
  Receive Date: 20241115
  Receipt Date: 20241126
  Transmission Date: 20250115
  Serious: Yes (Hospitalization, Disabling)
  Sender: BOEHRINGER INGELHEIM
  Company Number: JP-NBI-2024-BI-062678

PATIENT
  Age: 31 Year
  Sex: Male

DRUGS (1)
  1. JARDIANCE [Suspect]
     Active Substance: EMPAGLIFLOZIN
     Indication: Chronic kidney disease
     Route: 048
     Dates: start: 20240308

REACTIONS (3)
  - Sepsis [Recovered/Resolved with Sequelae]
  - Urinary tract infection [Recovered/Resolved with Sequelae]
  - Dialysis [Unknown]

NARRATIVE: CASE EVENT DATE: 20240404
